FAERS Safety Report 7849189 (Version 3)
Quarter: 2014Q1

REPORT INFORMATION
  Report Type: Spontaneous
  Country: US (occurrence: US)
  Receive Date: 20110310
  Receipt Date: 20140326
  Transmission Date: 20141002
  Serious: Yes (Hospitalization, Other)
  Sender: FDA-Public Use
  Company Number: US-BAYER-2011-021235

PATIENT
  Age: 34 Year
  Sex: Female
  Weight: 102.4 kg

DRUGS (10)
  1. YAZ [Suspect]
     Indication: ACNE
     Dosage: UNK
     Route: 048
     Dates: start: 200712, end: 200802
  2. YAZ [Suspect]
     Indication: PREMENSTRUAL SYNDROME
  3. ZOLPIDEM [Concomitant]
     Dosage: 10 MG, UNK
     Dates: start: 20090627
  4. AMITRIPTYLINE [Concomitant]
     Dosage: 10 MG, UNK
     Dates: start: 20090807
  5. IBUPROFEN [Concomitant]
     Dosage: 800 MG, UNK
     Dates: start: 20090808
  6. SUCRALFATE [Concomitant]
     Dosage: 1 G, UNK
     Dates: start: 20090822
  7. LORAZEPAM [Concomitant]
     Dosage: 0.5 MG, UNK
     Dates: start: 20090823
  8. BUTALBITAL, ACETAMINOPHEN + CAFFEINE [Concomitant]
     Dosage: UNK
     Dates: start: 20090722
  9. ONDANSETRON [Concomitant]
     Dosage: 8 MG, UNK
     Dates: start: 20090808
  10. HYDROCODONE/ACETAMINOPHEN [Concomitant]
     Dosage: UNK
     Dates: start: 20090522, end: 20090807

REACTIONS (5)
  - Gallbladder disorder [None]
  - Cholecystitis chronic [None]
  - Pain [None]
  - Emotional distress [None]
  - Anxiety [None]
